FAERS Safety Report 16598340 (Version 1)
Quarter: 2019Q3

REPORT INFORMATION
  Report Type: Spontaneous
  Country: US (occurrence: US)
  Receive Date: 20190719
  Receipt Date: 20190719
  Transmission Date: 20191004
  Serious: No
  Sender: FDA-Public Use
  Company Number: US-NEUROCRINE BIOSCIENCES INC.-2019NBI01894

PATIENT
  Age: 40 Year
  Sex: Male

DRUGS (2)
  1. INGREZZA [Suspect]
     Active Substance: VALBENAZINE
     Indication: TARDIVE DYSKINESIA
     Dates: start: 201905, end: 2019
  2. FANAPT [Concomitant]
     Active Substance: ILOPERIDONE
     Indication: PSYCHOTIC DISORDER

REACTIONS (3)
  - Diarrhoea [Not Recovered/Not Resolved]
  - Tardive dyskinesia [Not Recovered/Not Resolved]
  - Incontinence [Not Recovered/Not Resolved]
